FAERS Safety Report 7003838-X (Version None)
Quarter: 2010Q3

REPORT INFORMATION
  Report Type: 
  Country: None (occurrence: None)
  Receive Date: 20100920
  Receipt Date: 20091201
  Transmission Date: 20110219
  Serious: No
  Sender: FDA-Public Use
  Company Number: US-WYE-H12475809

PATIENT
  Age: 62 Year
  Sex: Male

DRUGS (1)
  1. PROTONIX [Suspect]
     Dosage: 40 MG, FREQUENCY NOT SPECIFIED
     Route: 048

REACTIONS (2)
  - CONTUSION [None]
  - URINE COLOUR ABNORMAL [None]
